FAERS Safety Report 9859798 (Version 1)
Quarter: 2014Q1

REPORT INFORMATION
  Report Type: Spontaneous
  Country: US (occurrence: US)
  Receive Date: 20140131
  Receipt Date: 20140131
  Transmission Date: 20141002
  Serious: No
  Sender: FDA-Public Use
  Company Number: US-PFIZER INC-2014026238

PATIENT
  Age: 59 Year
  Sex: Male
  Weight: 74.83 kg

DRUGS (2)
  1. ATORVASTATIN CALCIUM [Suspect]
     Indication: BLOOD CHOLESTEROL INCREASED
     Dosage: 10 MG, 1X/DAY
     Dates: start: 201301, end: 201303
  2. CRESTOR [Suspect]
     Indication: BLOOD CHOLESTEROL INCREASED
     Dosage: 10 MG, 1X/DAY
     Dates: start: 201303, end: 201304

REACTIONS (3)
  - Drug ineffective [Recovered/Resolved]
  - Enzyme level increased [Recovered/Resolved]
  - Muscle spasms [Recovered/Resolved]
